FAERS Safety Report 6936182-7 (Version None)
Quarter: 2010Q3

REPORT INFORMATION
  Report Type: 
  Country: None (occurrence: None)
  Receive Date: 20100823
  Receipt Date: 20100812
  Transmission Date: 20110219
  Serious: Yes (Other)
  Sender: FDA-Public Use
  Company Number: US-PFIZER INC-2010084836

PATIENT
  Age: 78 Year
  Sex: Female

DRUGS (1)
  1. XALATAN [Suspect]
     Dosage: UNK
     Route: 047

REACTIONS (6)
  - ABDOMINAL PAIN UPPER [None]
  - CARDIAC DISORDER [None]
  - DRY EYE [None]
  - FATIGUE [None]
  - MALAISE [None]
  - SJOGREN'S SYNDROME [None]
